FAERS Safety Report 5655220-5 (Version None)
Quarter: 2008Q1

REPORT INFORMATION
  Report Type: 
  Country: None (occurrence: None)
  Receive Date: 20080307
  Receipt Date: 20080306
  Transmission Date: 20080703
  Serious: Yes (Other)
  Sender: FDA-Public Use
  Company Number: A0713651A

PATIENT
  Age: 46 Year
  Sex: Female

DRUGS (1)
  1. ALLI [Suspect]

REACTIONS (6)
  - HEPATITIS [None]
  - HEPATOMEGALY [None]
  - LIVER DISORDER [None]
  - MALAISE [None]
  - NAUSEA [None]
  - PAIN [None]
